FAERS Safety Report 10142873 (Version 1)
Quarter: 2014Q2

REPORT INFORMATION
  Report Type: Spontaneous
  Country: US (occurrence: US)
  Receive Date: 20140430
  Receipt Date: 20140430
  Transmission Date: 20141212
  Serious: Yes (Other)
  Sender: FDA-Public Use
  Company Number: US-ELI_LILLY_AND_COMPANY-US201404007713

PATIENT
  Age: 56 Year
  Sex: Male
  Weight: 81.63 kg

DRUGS (1)
  1. HUMALOG LISPRO [Suspect]
     Indication: PRODUCT USED FOR UNKNOWN INDICATION
     Dosage: UNK
     Route: 058

REACTIONS (9)
  - Blood glucose increased [Unknown]
  - Accident [Unknown]
  - Headache [Unknown]
  - Herpes zoster [Unknown]
  - Malaise [Unknown]
  - Thirst [Unknown]
  - Dysphonia [Unknown]
  - Impatience [Unknown]
  - Drug ineffective [Unknown]
